FAERS Safety Report 10128445 (Version 1)
Quarter: 2014Q2

REPORT INFORMATION
  Report Type: Report from Study
  Country: SE (occurrence: SE)
  Receive Date: 20140428
  Receipt Date: 20140428
  Transmission Date: 20141212
  Serious: Yes (Other)
  Sender: FDA-Public Use
  Company Number: SE-UCBSA-118640

PATIENT
  Age: 69 Year
  Sex: Male

DRUGS (5)
  1. CIMZIA [Suspect]
     Indication: RHEUMATOID ARTHRITIS
     Route: 058
     Dates: start: 20131014, end: 2014
  2. AMLODIPIN [Concomitant]
     Indication: HYPERTENSION
  3. ENALAPRIL [Concomitant]
     Indication: HYPERTENSION
  4. KETOPROFEN [Concomitant]
     Indication: ARTHRITIS
     Dates: start: 20131010
  5. FOLIC ACID [Concomitant]
     Dates: start: 20131010

REACTIONS (1)
  - Prostate cancer [Unknown]
